FAERS Safety Report 25096873 (Version 1)
Quarter: 2025Q1

REPORT INFORMATION
  Report Type: Other
  Country: BG (occurrence: BG)
  Receive Date: 20250319
  Receipt Date: 20250319
  Transmission Date: 20250408
  Serious: Yes (Hospitalization, Other)
  Sender: HEALTHCARE PHARMACEUTICALS
  Company Number: BG-Healthcare Pharmaceuticals Ltd.-2173215

PATIENT
  Age: 81 Year

DRUGS (5)
  1. ATENOLOL [Suspect]
     Active Substance: ATENOLOL
     Indication: Product used for unknown indication
  2. NIFEDIPINE [Suspect]
     Active Substance: NIFEDIPINE
  3. ATORVASTATIN CALCIUM [Concomitant]
     Active Substance: ATORVASTATIN CALCIUM
  4. AMLODIPINE AND VALSARTAN [Suspect]
     Active Substance: AMLODIPINE\VALSARTAN
  5. PROPAFENONE [Suspect]
     Active Substance: PROPAFENONE
     Dates: start: 202304

REACTIONS (2)
  - Basal cell carcinoma [Recovered/Resolved]
  - Keratoacanthoma [Recovered/Resolved]
